FAERS Safety Report 6076373-3 (Version None)
Quarter: 2009Q1

REPORT INFORMATION
  Report Type: 
  Country: None (occurrence: None)
  Receive Date: 20090211
  Receipt Date: 20090205
  Transmission Date: 20090719
  Serious: Yes (Other)
  Sender: FDA-Public Use
  Company Number: 040948

PATIENT
  Age: 23 Year
  Sex: Female
  Weight: 46.7 kg

DRUGS (1)
  1. PLAN B [Suspect]
     Indication: CONTRACEPTION
     Dosage: 1 TABLET, QD, ORAL
     Route: 048
     Dates: start: 20090123, end: 20090124

REACTIONS (2)
  - EPISTAXIS [None]
  - THROMBOSIS [None]
